FAERS Safety Report 9351283 (Version 3)
Quarter: 2013Q3

REPORT INFORMATION
  Report Type: Spontaneous
  Country: US (occurrence: US)
  Receive Date: 20130617
  Receipt Date: 20130730
  Transmission Date: 20140515
  Serious: Yes (Other)
  Sender: FDA-Public Use
  Company Number: US-PFIZER INC-2013181089

PATIENT
  Age: 56 Year
  Sex: Male
  Weight: 74.83 kg

DRUGS (2)
  1. EFFEXOR XR [Suspect]
     Indication: DEPRESSION
     Dosage: 175 MG, 2X/DAY
     Route: 048
     Dates: start: 2008
  2. KLONOPIN [Concomitant]
     Indication: ANXIETY
     Dosage: UNK, 2X/DAY

REACTIONS (4)
  - Off label use [Not Recovered/Not Resolved]
  - Convulsion [Unknown]
  - Pharyngeal disorder [Unknown]
  - Dysphagia [Not Recovered/Not Resolved]
